FAERS Safety Report 13640684 (Version 1)
Quarter: 2017Q2

REPORT INFORMATION
  Report Type: Report from Study
  Country: None (occurrence: BR)
  Receive Date: 20170611
  Receipt Date: 20170611
  Transmission Date: 20170830
  Serious: Yes (Hospitalization, Other)
  Sender: FDA-Public Use
  Company Number: BR-ABBVIE-17K-020-1999439-00

PATIENT
  Age: 52 Year
  Sex: Female
  Weight: 90 kg

DRUGS (2)
  1. NOREPINEPHRINE. [Suspect]
     Active Substance: NOREPINEPHRINE
     Indication: SEPTIC SHOCK
     Route: 065
  2. HUMIRA [Suspect]
     Active Substance: ADALIMUMAB
     Indication: RHEUMATOID ARTHRITIS
     Route: 058
     Dates: start: 20150414, end: 20160115

REACTIONS (15)
  - Extremity necrosis [Unknown]
  - Poor peripheral circulation [Unknown]
  - Bacterial infection [Unknown]
  - Memory impairment [Recovered/Resolved]
  - Diabetes mellitus [Recovered/Resolved]
  - Immunodeficiency [Unknown]
  - Hypotension [Recovered/Resolved]
  - Urinary tract infection [Recovered/Resolved]
  - Dementia [Recovered/Resolved]
  - Dyspnoea [Recovered/Resolved]
  - Renal failure [Recovered/Resolved]
  - Confusional state [Recovered/Resolved]
  - Septic shock [Recovered/Resolved]
  - Coma [Recovered/Resolved]
  - Blood glucose decreased [Recovered/Resolved]

NARRATIVE: CASE EVENT DATE: 201512
